FAERS Safety Report 8193735-9 (Version None)
Quarter: 2012Q1

REPORT INFORMATION
  Report Type: 
  Country: None (occurrence: None)
  Receive Date: 20120308
  Receipt Date: 20120228
  Transmission Date: 20120608
  Serious: Yes (Hospitalization)
  Sender: FDA-Public Use
  Company Number: NL-MEDIMMUNE-MEDI-0015084

PATIENT
  Sex: Male

DRUGS (2)
  1. SYNAGIS [Suspect]
     Route: 030
     Dates: start: 20120228, end: 20120228
  2. SYNAGIS [Suspect]
     Route: 030
     Dates: start: 20111024, end: 20120131

REACTIONS (2)
  - MENINGITIS [None]
  - PYREXIA [None]
